FAERS Safety Report 24464484 (Version 1)
Quarter: 2024Q4

REPORT INFORMATION
  Report Type: Report from Study
  Country: US (occurrence: US)
  Receive Date: 20241018
  Receipt Date: 20241018
  Transmission Date: 20250115
  Serious: No
  Sender: ROCHE
  Company Number: US-ROCHE-3488698

PATIENT
  Age: 68 Year
  Sex: Male

DRUGS (31)
  1. XOLAIR [Suspect]
     Active Substance: OMALIZUMAB
     Indication: Idiopathic urticaria
     Dosage: 150MG/ML
     Route: 058
     Dates: start: 20160429
  2. XOLAIR [Suspect]
     Active Substance: OMALIZUMAB
     Indication: Gastrooesophageal reflux disease
     Route: 058
  3. XOLAIR [Suspect]
     Active Substance: OMALIZUMAB
     Indication: Nasopharyngitis
  4. CETIRIZINE HYDROCHLORIDE [Concomitant]
     Active Substance: CETIRIZINE HYDROCHLORIDE
  5. FLONASE [Concomitant]
     Active Substance: FLUTICASONE PROPIONATE
  6. SYMBICORT [Concomitant]
     Active Substance: BUDESONIDE\FORMOTEROL FUMARATE DIHYDRATE
  7. ALBUTEROL [Concomitant]
     Active Substance: ALBUTEROL
  8. OMEPRAZOLE [Concomitant]
     Active Substance: OMEPRAZOLE
  9. TYLENOL [Concomitant]
     Active Substance: ACETAMINOPHEN
  10. ASPIRIN [Concomitant]
     Active Substance: ASPIRIN
  11. WELLBUTRIN [Concomitant]
     Active Substance: BUPROPION HYDROCHLORIDE
  12. BUSPAR [Concomitant]
     Active Substance: BUSPIRONE HYDROCHLORIDE
  13. CELEBREX [Concomitant]
     Active Substance: CELECOXIB
  14. VITAMIN B12 [Concomitant]
     Active Substance: CYANOCOBALAMIN
  15. DULAGLUTIDE [Concomitant]
     Active Substance: DULAGLUTIDE
  16. EPINEPHRINE [Concomitant]
     Active Substance: EPINEPHRINE
  17. ALLEGRA [Concomitant]
     Active Substance: FEXOFENADINE HYDROCHLORIDE
  18. LASIX [Concomitant]
     Active Substance: FUROSEMIDE
  19. NEURONTIN [Concomitant]
     Active Substance: GABAPENTIN
  20. ADVIL [Concomitant]
     Active Substance: IBUPROFEN
  21. MOTRIN [Concomitant]
     Active Substance: IBUPROFEN
  22. HUMALOG [Concomitant]
     Active Substance: INSULIN LISPRO
  23. HUMULIN NOS [Concomitant]
     Active Substance: INSULIN HUMAN
  24. AVAPRO [Concomitant]
     Active Substance: IRBESARTAN
  25. GLUCOPHAGE [Concomitant]
     Active Substance: METFORMIN HYDROCHLORIDE
  26. LOPRESSOR [Concomitant]
     Active Substance: METOPROLOL TARTRATE
  27. PRILOSEC [Concomitant]
     Active Substance: OMEPRAZOLE MAGNESIUM
  28. PRAVACHOL [Concomitant]
     Active Substance: PRAVASTATIN SODIUM
  29. FLOMAX [Concomitant]
     Active Substance: TAMSULOSIN HYDROCHLORIDE
  30. ULTRAM [Concomitant]
     Active Substance: TRAMADOL HYDROCHLORIDE
  31. DIOVAN [Concomitant]
     Active Substance: VALSARTAN

REACTIONS (2)
  - Off label use [Unknown]
  - No adverse event [Unknown]

NARRATIVE: CASE EVENT DATE: 20160429
